FAERS Safety Report 4829354-9 (Version None)
Quarter: 2005Q4

REPORT INFORMATION
  Report Type: 
  Country: None (occurrence: None)
  Receive Date: 20051115
  Receipt Date: 20051109
  Transmission Date: 20060501
  Serious: Yes (Hospitalization)
  Sender: FDA-Public Use
  Company Number: DL2005426

PATIENT
  Age: 37 Year
  Sex: Female

DRUGS (2)
  1. MIFEPRISTONE TABLETS, 200 MG (DANCO LABS) [Suspect]
     Indication: ABORTION INDUCED
     Dosage: 200 MG , ORAL
     Route: 048
     Dates: start: 20050915
  2. MISOPROSTOL [Suspect]
     Dosage: 800 MCG , VAGINAL
     Route: 067
     Dates: start: 20050916

REACTIONS (3)
  - ABDOMINAL PAIN [None]
  - MASS [None]
  - SALPINGO-OOPHORITIS [None]
